FAERS Safety Report 8873324 (Version 5)
Quarter: 2013Q4

REPORT INFORMATION
  Report Type: Spontaneous
  Country: US (occurrence: US)
  Receive Date: 20121030
  Receipt Date: 20131204
  Transmission Date: 20140711
  Serious: Yes (Hospitalization, Disabling, Other)
  Sender: FDA-Public Use
  Company Number: US-MERCK-1210USA008679

PATIENT
  Sex: Male
  Weight: 88.89 kg

DRUGS (10)
  1. FOSAMAX [Suspect]
     Indication: OSTEOPOROSIS
     Dosage: 10 MG, QAM
     Route: 048
     Dates: start: 20000628
  2. FOSAMAX [Suspect]
     Dosage: 70 MG, QW
     Route: 048
     Dates: start: 20040112, end: 20050802
  3. FOSAMAX [Suspect]
     Dosage: 70 MG, QW
     Route: 048
     Dates: start: 200710, end: 20101121
  4. FOSAMAX PLUS D [Suspect]
     Indication: OSTEOPOROSIS
     Dosage: 70/2800 MG, QW
     Route: 048
     Dates: start: 20071012, end: 20100713
  5. CALCIUM CITRATE [Concomitant]
     Dosage: 500 MG, QD
     Dates: start: 1993
  6. ZOCOR [Concomitant]
     Indication: HYPERCHOLESTEROLAEMIA
     Dosage: 20 MG, UNK
     Route: 048
     Dates: start: 1997
  7. PERSANTINE [Concomitant]
     Indication: ANTICOAGULANT THERAPY
     Dosage: UNK
     Dates: start: 1983
  8. CLARITIN [Concomitant]
     Indication: HYPERSENSITIVITY
     Dosage: UNK
     Dates: start: 1999
  9. PRILOSEC [Concomitant]
     Indication: GASTROOESOPHAGEAL REFLUX DISEASE
     Dosage: UNK
     Dates: start: 1997, end: 2004
  10. VITAMIN D (UNSPECIFIED) [Concomitant]
     Indication: OSTEOPOROSIS

REACTIONS (43)
  - Femur fracture [Not Recovered/Not Resolved]
  - Intramedullary rod insertion [Unknown]
  - Femur fracture [Unknown]
  - Open reduction of fracture [Unknown]
  - Fracture nonunion [Unknown]
  - Intramedullary rod insertion [Unknown]
  - Bone graft [Unknown]
  - Osteoporosis [Not Recovered/Not Resolved]
  - Stress fracture [Not Recovered/Not Resolved]
  - Low turnover osteopathy [Not Recovered/Not Resolved]
  - Staphylococcal infection [Unknown]
  - Femur fracture [Not Recovered/Not Resolved]
  - Infection [Unknown]
  - Stent placement [Unknown]
  - Cyst [Unknown]
  - Myocardial infarction [Unknown]
  - Skin cancer [Unknown]
  - Cardiac pacemaker insertion [Unknown]
  - Medical device removal [Unknown]
  - Spinal fracture [Unknown]
  - Chest pain [Unknown]
  - Chest pain [Unknown]
  - Vertebral wedging [Unknown]
  - Spinal fracture [Unknown]
  - Carpal tunnel syndrome [Unknown]
  - Sleep apnoea syndrome [Unknown]
  - Intervertebral disc disorder [Unknown]
  - Coronary arterial stent insertion [Unknown]
  - Angioplasty [Unknown]
  - Balance disorder [Unknown]
  - Anaemia postoperative [Unknown]
  - Atelectasis [Recovering/Resolving]
  - Urinary retention [Unknown]
  - Osteoarthritis [Unknown]
  - Confusional state [Unknown]
  - Tremor [Unknown]
  - Anxiety [Unknown]
  - Cardiomegaly [Unknown]
  - White blood cell count increased [Unknown]
  - Nausea [Unknown]
  - Vomiting [Unknown]
  - Musculoskeletal pain [Unknown]
  - Musculoskeletal chest pain [Recovered/Resolved]
